FAERS Safety Report 14013696 (Version 3)
Quarter: 2017Q4

REPORT INFORMATION
  Report Type: Report from Study
  Country: US (occurrence: US)
  Receive Date: 20170926
  Receipt Date: 20171115
  Transmission Date: 20180321
  Serious: Yes (Hospitalization)
  Sender: FDA-Public Use
  Company Number: US-TAKEDA-2017TUS019532

PATIENT
  Age: 69 Year
  Sex: Female
  Weight: 50.34 kg

DRUGS (22)
  1. VITAMIN A                          /00056001/ [Concomitant]
     Active Substance: RETINOL
     Dosage: UNK
  2. TAGAMET [Concomitant]
     Active Substance: CIMETIDINE
     Dosage: UNK UNK, QD
  3. ENTOCORT [Concomitant]
     Active Substance: BUDESONIDE
     Dosage: UNK
     Route: 048
  4. GANCICLOVIR SODIUM. [Concomitant]
     Active Substance: GANCICLOVIR SODIUM
     Dosage: UNK UNK, BID
  5. CALCIUM [Concomitant]
     Active Substance: CALCIUM
     Dosage: UNK
  6. ECHINACEA                          /01323501/ [Concomitant]
     Active Substance: ECHINACEA PURPUREA
     Dosage: UNK UNK, QD
  7. AZATHIOPRINE. [Concomitant]
     Active Substance: AZATHIOPRINE
     Indication: CROHN^S DISEASE
     Dosage: 100 MG, QD
     Route: 048
     Dates: start: 1994, end: 201708
  8. LIALDA [Concomitant]
     Active Substance: MESALAMINE
     Indication: CROHN^S DISEASE
     Dosage: 4.8 G, QD
     Route: 048
     Dates: start: 1994
  9. FLAXSEED [Concomitant]
     Active Substance: FLAX SEED
     Dosage: UNK
  10. LIALDA [Concomitant]
     Active Substance: MESALAMINE
     Dosage: UNK, QD
  11. SYNTHROID [Concomitant]
     Active Substance: LEVOTHYROXINE SODIUM
     Dosage: UNK
     Route: 048
  12. PRASCION RA [Concomitant]
     Active Substance: SULFACETAMIDE SODIUM\SULFUR
     Dosage: UNK UNK, BID
  13. CANASA [Concomitant]
     Active Substance: MESALAMINE
     Dosage: 1000 MG, UNK
     Route: 054
  14. NORTRIPTYLINE HCL [Concomitant]
     Active Substance: NORTRIPTYLINE HYDROCHLORIDE
     Dosage: UNK
  15. VEDOLIZUMAB [Suspect]
     Active Substance: VEDOLIZUMAB
     Indication: CROHN^S DISEASE
     Dosage: 300 MG, UNK
     Route: 042
     Dates: start: 201701, end: 201708
  16. VICODIN [Concomitant]
     Active Substance: ACETAMINOPHEN\HYDROCODONE BITARTRATE
     Dosage: UNK
     Route: 048
  17. GABAPENTIN. [Concomitant]
     Active Substance: GABAPENTIN
     Dosage: UNK UNK, Q8HR
     Route: 048
  18. ESTRADIOL. [Concomitant]
     Active Substance: ESTRADIOL
     Dosage: 0.5 MG, QD
  19. GOLDEN SEAL                        /01446501/ [Concomitant]
     Active Substance: HERBALS\HOMEOPATHICS\GOLDENSEAL
     Dosage: UNK UNK, QD
  20. VEDOLIZUMAB [Suspect]
     Active Substance: VEDOLIZUMAB
     Dosage: 300 MG, UNK
     Route: 042
     Dates: start: 201710
  21. HYOSCYAMINE SULFATE. [Concomitant]
     Active Substance: HYOSCYAMINE SULFATE
     Dosage: UNK
     Route: 060
  22. ENTOCORT [Concomitant]
     Active Substance: BUDESONIDE
     Indication: CROHN^S DISEASE
     Dosage: 9 MG, UNK
     Dates: start: 201708

REACTIONS (5)
  - Systemic inflammatory response syndrome [Unknown]
  - Cytomegalovirus chorioretinitis [Recovered/Resolved with Sequelae]
  - Pneumonia cytomegaloviral [Recovered/Resolved with Sequelae]
  - Cranial nerve paralysis [Not Recovered/Not Resolved]
  - Cytomegalovirus viraemia [Recovered/Resolved with Sequelae]

NARRATIVE: CASE EVENT DATE: 20170812
